FAERS Safety Report 14208301 (Version 2)
Quarter: 2018Q1

REPORT INFORMATION
  Report Type: Spontaneous
  Country: CN (occurrence: CN)
  Receive Date: 20171121
  Receipt Date: 20180111
  Transmission Date: 20180508
  Serious: Yes (Other)
  Sender: FDA-Public Use
  Company Number: CN-009507513-1711CHN006763

PATIENT
  Age: 25 Year
  Sex: Female
  Weight: 50 kg

DRUGS (1)
  1. NOXAFIL [Suspect]
     Active Substance: POSACONAZOLE
     Indication: FUNGAL INFECTION
     Dosage: 200 MG, QID
     Route: 048
     Dates: start: 20170913, end: 20170928

REACTIONS (38)
  - Leukoplakia oral [Recovered/Resolved]
  - Blood albumin decreased [Recovered/Resolved]
  - High density lipoprotein decreased [Not Recovered/Not Resolved]
  - Bilirubin conjugated increased [Recovered/Resolved]
  - Globulins decreased [Recovered/Resolved]
  - Blood potassium decreased [Recovered/Resolved]
  - Blood bilirubin increased [Recovered/Resolved]
  - Diarrhoea [Recovered/Resolved]
  - Protein total decreased [Not Recovered/Not Resolved]
  - Blood uric acid decreased [Recovered/Resolved]
  - Blood urea decreased [Recovered/Resolved]
  - Apolipoprotein A-I decreased [Not Recovered/Not Resolved]
  - Human epidermal growth factor receptor increased [Not Recovered/Not Resolved]
  - Haemoglobin decreased [Not Recovered/Not Resolved]
  - Blood phosphorus decreased [Recovered/Resolved]
  - Blood calcium decreased [Not Recovered/Not Resolved]
  - Blood magnesium decreased [Recovered/Resolved]
  - Blood lactate dehydrogenase decreased [Recovered/Resolved]
  - Blood creatine phosphokinase decreased [Not Recovered/Not Resolved]
  - Blood chloride increased [Recovered/Resolved]
  - Carbon dioxide decreased [Recovered/Resolved]
  - White blood cell count decreased [Recovered/Resolved]
  - Diarrhoea [Recovered/Resolved]
  - Blood alkaline phosphatase decreased [Recovered/Resolved]
  - Blood cholinesterase decreased [Not Recovered/Not Resolved]
  - Blood creatinine decreased [Not Recovered/Not Resolved]
  - Blood sodium decreased [Recovered/Resolved]
  - Total bile acids increased [Recovered/Resolved]
  - Mouth ulceration [Recovered/Resolved]
  - Neutrophil count decreased [Not Recovered/Not Resolved]
  - Diarrhoea [Recovered/Resolved]
  - Blood bilirubin unconjugated increased [Recovered/Resolved]
  - Blood cholesterol decreased [Not Recovered/Not Resolved]
  - Pyrexia [Recovered/Resolved]
  - Rash erythematous [Recovered/Resolved]
  - Apolipoprotein B increased [Recovered/Resolved]
  - Blood triglycerides increased [Not Recovered/Not Resolved]
  - Platelet count decreased [Not Recovered/Not Resolved]

NARRATIVE: CASE EVENT DATE: 20170919
